FAERS Safety Report 5628902-9 (Version None)
Quarter: 2008Q1

REPORT INFORMATION
  Report Type: 
  Country: None (occurrence: None)
  Receive Date: 20080215
  Receipt Date: 20080205
  Transmission Date: 20080703
  Serious: Yes (Other)
  Sender: FDA-Public Use
  Company Number: CA-PFIZER INC-2008013532

PATIENT
  Age: 49 Year
  Sex: Male

DRUGS (1)
  1. CHANTIX [Suspect]
     Route: 048
     Dates: start: 20080123, end: 20080130

REACTIONS (5)
  - AGGRESSION [None]
  - FEELING ABNORMAL [None]
  - HOMICIDAL IDEATION [None]
  - INSOMNIA [None]
  - PARAESTHESIA [None]
